FAERS Safety Report 7854456-2 (Version None)
Quarter: 2011Q3

REPORT INFORMATION
  Report Type: 
  Country: None (occurrence: None)
  Receive Date: 20110916
  Receipt Date: 20110427
  Transmission Date: 20111222
  Serious: Yes (Other)
  Sender: FDA-Public Use
  Company Number: 2011SP014758

PATIENT
  Age: 27 Year
  Sex: Female
  Weight: 121.1104 kg

DRUGS (2)
  1. WELLBUTRIN [Concomitant]
  2. IMPLANON [Suspect]
     Indication: CONTRACEPTION
     Dosage: 1 DF
     Dates: start: 20090801

REACTIONS (1)
  - INFERTILITY FEMALE [None]
